FAERS Safety Report 17169913 (Version 1)
Quarter: 2019Q4

REPORT INFORMATION
  Report Type: Spontaneous
  Country: SE (occurrence: SE)
  Receive Date: 20191218
  Receipt Date: 20191218
  Transmission Date: 20200122
  Serious: Yes (Hospitalization)
  Sender: FDA-Public Use
  Company Number: SE-009507513-1912SWE007933

PATIENT
  Age: 70 Year
  Sex: Female

DRUGS (2)
  1. MIRTAZAPINE. [Suspect]
     Active Substance: MIRTAZAPINE
     Dosage: 180 MILLIGRAM
     Route: 048
     Dates: start: 20190205, end: 20190205
  2. PROPAVAN [Suspect]
     Active Substance: PROPIOMAZINE
     Dosage: 750 MILLIGRAM
     Route: 048
     Dates: start: 20190205, end: 20190205

REACTIONS (2)
  - Suicide attempt [Unknown]
  - Intentional overdose [Unknown]

NARRATIVE: CASE EVENT DATE: 20190205
